FAERS Safety Report 6097071-6 (Version None)
Quarter: 2009Q1

REPORT INFORMATION
  Report Type: 
  Country: None (occurrence: None)
  Receive Date: 20090227
  Receipt Date: 20090216
  Transmission Date: 20090719
  Serious: Yes (Hospitalization, Disabling, Other)
  Sender: FDA-Public Use
  Company Number: IT-PFIZER INC-2009173849

PATIENT

DRUGS (13)
  1. ADRIBLASTIN [Suspect]
     Dosage: 80 MG
     Dates: start: 20081029, end: 20090123
  2. REVLIMID [Suspect]
     Indication: DIFFUSE LARGE B-CELL LYMPHOMA
     Dosage: 20 MG
     Route: 048
     Dates: start: 20081029, end: 20090123
  3. RITUXIMAB [Suspect]
     Indication: DIFFUSE LARGE B-CELL LYMPHOMA
     Dosage: 600 MG
     Dates: start: 20081029, end: 20090123
  4. ENDOXAN [Suspect]
     Dosage: 1200 MG
     Dates: start: 20081029, end: 20090123
  5. PREDNISONE [Suspect]
     Dosage: 60 MG
     Dates: start: 20081029, end: 20090123
  6. ZEFFIX [Concomitant]
     Dosage: UNK
     Route: 048
     Dates: start: 20081029
  7. PURSENNID [Concomitant]
  8. NEULASTA [Concomitant]
  9. BACTRIM [Concomitant]
     Dosage: UNK
     Route: 048
     Dates: start: 20081029
  10. PYRIDOXINE HYDROCHLORIDE [Concomitant]
     Dosage: 100 MG
     Route: 048
     Dates: start: 20081126
  11. LYRICA [Concomitant]
     Dosage: 75 MG
     Route: 048
     Dates: start: 20081126
  12. SPORANOX [Concomitant]
     Dosage: 200 MG
     Route: 048
     Dates: start: 20081029
  13. ZOVIRAX [Concomitant]
     Dosage: 1600 MG
     Route: 048
     Dates: start: 20081029

REACTIONS (3)
  - EXTRAVASATION [None]
  - NEUROPATHY PERIPHERAL [None]
  - PHLEBITIS [None]
